FAERS Safety Report 7730012-1 (Version None)
Quarter: 2011Q3

REPORT INFORMATION
  Report Type: 
  Country: None (occurrence: None)
  Receive Date: 20110901
  Receipt Date: 20110901
  Transmission Date: 20111222
  Serious: Yes (Life-Threatening, Hospitalization)
  Sender: FDA-Public Use
  Company Number: None

PATIENT
  Sex: Female
  Weight: 63.9572 kg

DRUGS (2)
  1. BYETTA [Suspect]
     Indication: TYPE 2 DIABETES MELLITUS
     Dosage: 10MG 2 X DAY SQ
     Route: 058
     Dates: start: 20060401, end: 20090501
  2. BYETTA [Suspect]
     Indication: KETOACIDOSIS
     Dosage: 10MG 2 X DAY SQ
     Route: 058
     Dates: start: 20060401, end: 20090501

REACTIONS (3)
  - ILEUS [None]
  - DEHYDRATION [None]
  - INTESTINAL OBSTRUCTION [None]
